FAERS Safety Report 7832988 (Version 2)
Quarter: 2012Q4

REPORT INFORMATION
  Report Type: 
  Country: US (occurrence: US)
  Receive Date: 20110228
  Receipt Date: 20120917
  Transmission Date: 20130627
  Serious: Yes (Other)
  Sender: FDA-Public Use
  Company Number: US-ROCHE-735301

PATIENT
  Age: 20 None
  Sex: Male
  Weight: 95.3 kg

DRUGS (3)
  1. ACCUTANE [Suspect]
     Indication: ACNE
     Route: 065
     Dates: start: 200101, end: 200201
  2. ACCUTANE [Suspect]
     Route: 065
     Dates: start: 20020101, end: 20030101
  3. ACCUTANE [Suspect]
     Route: 065
     Dates: start: 200301, end: 200306

REACTIONS (5)
  - Colitis ulcerative [Unknown]
  - Gastrointestinal injury [Unknown]
  - Inflammatory bowel disease [Unknown]
  - Inguinal hernia [Unknown]
  - Crohn^s disease [Unknown]
